FAERS Safety Report 25122544 (Version 1)
Quarter: 2025Q1

REPORT INFORMATION
  Report Type: Spontaneous
  Country: US (occurrence: US)
  Receive Date: 20250326
  Receipt Date: 20250326
  Transmission Date: 20250409
  Serious: No
  Sender: ALCON
  Company Number: US-ALCON LABORATORIES-ALC2024US002422

PATIENT
  Age: 64 Year
  Sex: Female

DRUGS (3)
  1. PATADAY ONCE DAILY RELIEF [Suspect]
     Active Substance: OLOPATADINE HYDROCHLORIDE
     Indication: Eye allergy
     Route: 047
  2. PATADAY TWICE A DAY RELIEF [Suspect]
     Active Substance: OLOPATADINE HYDROCHLORIDE
     Indication: Eye allergy
     Route: 047
  3. LUMIFY [Concomitant]
     Active Substance: BRIMONIDINE TARTRATE
     Indication: Eye allergy
     Route: 065

REACTIONS (7)
  - Drug ineffective [Unknown]
  - Foreign body sensation in eyes [Unknown]
  - Viral infection [Unknown]
  - Eye irritation [Unknown]
  - Ocular hyperaemia [Unknown]
  - Vision blurred [Recovered/Resolved]
  - Ocular discomfort [Recovered/Resolved]
